FAERS Safety Report 8896363 (Version 1)
Quarter: 2012Q4

REPORT INFORMATION
  Report Type: Spontaneous
  Country: US (occurrence: None)
  Receive Date: 20121102
  Receipt Date: 20121102
  Transmission Date: 20130627
  Serious: Yes (Hospitalization)
  Sender: FDA-Public Use
  Company Number: 1472441

PATIENT
  Age: 50 Year
  Sex: Male

DRUGS (1)
  1. (BUPIVACAINE HYDROCHLORIDE) [Suspect]
     Indication: PAIN
     Dosage: Not Reported, UNKNOWN, INTRAVENOUS drip

REACTIONS (3)
  - Drug-induced liver injury [None]
  - Hepatitis B surface antibody positive [None]
  - Gastritis [None]
